FAERS Safety Report 8345952-2 (Version None)
Quarter: 2012Q2

REPORT INFORMATION
  Report Type: 
  Country: None (occurrence: None)
  Receive Date: 20120507
  Receipt Date: 20120501
  Transmission Date: 20120825
  Serious: Yes (Life-Threatening)
  Sender: FDA-Public Use
  Company Number: 2012SP022959

PATIENT
  Age: 57 Year
  Sex: Female

DRUGS (4)
  1. AMLODIPINE BESYLATE [Concomitant]
  2. LOSARTAN/HYDROCHLOOTHIAZIDE [Concomitant]
  3. MIRTAZAPINE [Suspect]
     Indication: PRODUCT USED FOR UNKNOWN INDICATION
     Dosage: 15 MG;
  4. ASCAL [Concomitant]

REACTIONS (1)
  - MYELOFIBROSIS [None]
